FAERS Safety Report 14178050 (Version 3)
Quarter: 2018Q1

REPORT INFORMATION
  Report Type: Spontaneous
  Country: GB (occurrence: GB)
  Receive Date: 20171110
  Receipt Date: 20180111
  Transmission Date: 20180508
  Serious: Yes (Hospitalization)
  Sender: FDA-Public Use
  Company Number: GB-TEVA-822624ACC

PATIENT
  Age: 61 Year
  Sex: Male
  Weight: 73 kg

DRUGS (13)
  1. CANDESARTAN. [Concomitant]
     Active Substance: CANDESARTAN
  2. OMEPRAZOLE. [Concomitant]
     Active Substance: OMEPRAZOLE
  3. COLECALCIFEROL [Concomitant]
     Active Substance: CHOLECALCIFEROL
     Route: 048
  4. MOXONIDINE [Concomitant]
     Active Substance: MOXONIDINE
  5. EPLERENONE. [Concomitant]
     Active Substance: EPLERENONE
  6. INSULIN GLULISINE [Concomitant]
     Active Substance: INSULIN GLULISINE
     Dosage: 100 UNITS PER ML
  7. ZOLEDRONIC ACID [Suspect]
     Active Substance: ZOLEDRONIC ACID
     Dosage: 4MG/5ML
     Route: 042
     Dates: start: 20171004, end: 20171004
  8. METFORMIN [Concomitant]
     Active Substance: METFORMIN HYDROCHLORIDE
  9. TADALAFIL [Concomitant]
     Active Substance: TADALAFIL
  10. CALCIUM CARBONATE. [Concomitant]
     Active Substance: CALCIUM CARBONATE
     Route: 048
  11. DILTIAZEM. [Concomitant]
     Active Substance: DILTIAZEM
  12. SIMVASTATIN. [Concomitant]
     Active Substance: SIMVASTATIN
  13. TOUJEO [Concomitant]
     Active Substance: INSULIN GLARGINE
     Dosage: 300UNITS/ML

REACTIONS (4)
  - Vomiting [Recovered/Resolved]
  - Malaise [Not Recovered/Not Resolved]
  - Myalgia [Recovered/Resolved]
  - Peripheral swelling [Recovered/Resolved]

NARRATIVE: CASE EVENT DATE: 201710
